FAERS Safety Report 11292018 (Version 1)
Quarter: 2015Q3

REPORT INFORMATION
  Report Type: Spontaneous
  Country: US (occurrence: None)
  Receive Date: 20150721
  Receipt Date: 20150721
  Transmission Date: 20151125
  Serious: Yes (Hospitalization, Disabling)
  Sender: FDA-Public Use
  Company Number: None

PATIENT
  Age: 64 Year
  Sex: Female
  Weight: 48.08 kg

DRUGS (14)
  1. ARMOUR THYROID [Concomitant]
     Active Substance: THYROID, PORCINE\THYROID, UNSPECIFIED
  2. PREDNISONE. [Concomitant]
     Active Substance: PREDNISONE
  3. MULTIVITAMIN [Concomitant]
     Active Substance: VITAMINS
  4. WHEELCHAIR [Concomitant]
     Active Substance: DEVICE
  5. CLONAZEPAM. [Concomitant]
     Active Substance: CLONAZEPAM
  6. LEVAQUIN [Suspect]
     Active Substance: LEVOFLOXACIN
     Indication: PNEUMONIA
     Route: 048
     Dates: start: 20150613, end: 20150622
  7. WALKER SEAT [Concomitant]
     Active Substance: DEVICE
  8. SHOWER CHAIR [Concomitant]
  9. MIRTAZAPINE. [Concomitant]
     Active Substance: MIRTAZAPINE
  10. VITAMIN B12 [Concomitant]
     Active Substance: CYANOCOBALAMIN
  11. LOPRESSOR [Concomitant]
     Active Substance: METOPROLOL TARTRATE
  12. ESTRACE [Concomitant]
     Active Substance: ESTRADIOL
  13. PERCOCET [Concomitant]
     Active Substance: ACETAMINOPHEN\OXYCODONE HYDROCHLORIDE
  14. PLAQUENIL [Concomitant]
     Active Substance: HYDROXYCHLOROQUINE SULFATE

REACTIONS (13)
  - Ataxia [None]
  - Muscular weakness [None]
  - Dysphagia [None]
  - Impaired work ability [None]
  - Dyspnoea [None]
  - Diaphragmatic disorder [None]
  - Paraesthesia [None]
  - Muscle disorder [None]
  - Choking sensation [None]
  - Fall [None]
  - Hypopnoea [None]
  - Neuromyopathy [None]
  - Neurotoxicity [None]

NARRATIVE: CASE EVENT DATE: 20150624
